FAERS Safety Report 25217386 (Version 1)
Quarter: 2025Q2

REPORT INFORMATION
  Report Type: Spontaneous
  Country: US (occurrence: US)
  Receive Date: 20250420
  Receipt Date: 20250420
  Transmission Date: 20250717
  Serious: No
  Sender: ELI LILLY AND COMPANY
  Company Number: US-ELI_LILLY_AND_COMPANY-US202504008981

PATIENT
  Sex: Female

DRUGS (1)
  1. ADCIRCA [Suspect]
     Active Substance: TADALAFIL
     Indication: Pulmonary arterial hypertension
     Dosage: 2 DOSAGE FORM, DAILY
     Route: 048

REACTIONS (8)
  - Tremor [Unknown]
  - Disorientation [Unknown]
  - Asthenia [Unknown]
  - Dyspnoea [Unknown]
  - Nasal congestion [Unknown]
  - Fatigue [Unknown]
  - Dizziness [Unknown]
  - Dyspepsia [Unknown]
